FAERS Safety Report 5502970-7 (Version None)
Quarter: 2007Q4

REPORT INFORMATION
  Report Type: 
  Country: None (occurrence: None)
  Receive Date: 20071031
  Receipt Date: 20070601
  Transmission Date: 20080405
  Serious: No
  Sender: FDA-Public Use
  Company Number: US-ASTRAZENECA-2007UW11083

PATIENT
  Age: 44 Year
  Sex: Female
  Weight: 59.9 kg

DRUGS (3)
  1. TENORETIC 100 [Suspect]
     Indication: HYPERTENSION
  2. ZESTRIL [Concomitant]
  3. ZESTORETIC [Concomitant]

REACTIONS (5)
  - EYELID DISORDER [None]
  - PHOTOPHOBIA [None]
  - PHOTOSENSITIVITY REACTION [None]
  - SKIN DISCOLOURATION [None]
  - VISUAL DISTURBANCE [None]
